FAERS Safety Report 19188760 (Version 1)
Quarter: 2021Q2

REPORT INFORMATION
  Report Type: Spontaneous
  Country: DE (occurrence: DE)
  Receive Date: 20210428
  Receipt Date: 20210428
  Transmission Date: 20210717
  Serious: Yes (Hospitalization)
  Sender: FDA-Public Use
  Company Number: DE-TEVA-2021-DE-1904186

PATIENT
  Age: 63 Year
  Sex: Female
  Weight: 95 kg

DRUGS (8)
  1. L?THYROXIN [Concomitant]
     Active Substance: LEVOTHYROXINE SODIUM
     Dosage: 125 DOSAGE FORMS DAILY; DAILY DOSE: 125 DF DOSAGE FORM EVERY DAYS
     Route: 048
  2. METOPROLOL. [Concomitant]
     Active Substance: METOPROLOL
     Dosage: 1/2?0?0:UNIT DOSE:112.5DOSAGEFORM
     Route: 048
  3. ROSUVASTATIN. [Concomitant]
     Active Substance: ROSUVASTATIN
     Dosage: 10 DOSAGE FORMS DAILY; DAILY DOSE: 10 DF DOSAGE FORM EVERY DAYS
     Route: 048
  4. QUILONUM [Concomitant]
     Active Substance: LITHIUM
     Dosage: 900 DOSAGE FORMS DAILY; DAILY DOSE: 900 DF DOSAGE FORM EVERY DAYS 2 SEPARATED DOSES
     Route: 048
  5. PAROXETIN [Concomitant]
     Active Substance: PAROXETINE HYDROCHLORIDE
     Dosage: 30 DOSAGE FORMS DAILY; DAILY DOSE: 30 DF DOSAGE FORM EVERY DAYS
     Route: 048
  6. HCT [Concomitant]
     Active Substance: HYDROCHLOROTHIAZIDE
     Dosage: 12.5 MILLIGRAM DAILY; DAILY DOSE: 12.5 MG MILLGRAM(S) EVERY DAYS
     Route: 048
  7. RAMIPRIL. [Suspect]
     Active Substance: RAMIPRIL
     Indication: HYPERTENSION
     Route: 048
  8. PANTOZOL [Concomitant]
     Active Substance: PANTOPRAZOLE SODIUM
     Dosage: 20 DOSAGE FORMS DAILY; DAILY DOSE: 20 DF DOSAGE FORM EVERY DAYS
     Route: 048

REACTIONS (3)
  - Pharyngeal swelling [Unknown]
  - Angioedema [Unknown]
  - Swollen tongue [Unknown]

NARRATIVE: CASE EVENT DATE: 20210108
